FAERS Safety Report 7322281 (Version 4)
Quarter: 2014Q1

REPORT INFORMATION
  Report Type: Spontaneous
  Country: US (occurrence: US)
  Receive Date: 20100317
  Receipt Date: 20140129
  Transmission Date: 20141002
  Serious: Yes (Hospitalization, Other)
  Sender: FDA-Public Use
  Company Number: US-BAYER-201016598NA

PATIENT
  Age: 27 Year
  Sex: Female
  Weight: 98 kg

DRUGS (17)
  1. YASMIN [Suspect]
     Indication: CONTRACEPTION
     Route: 048
     Dates: start: 2004, end: 2008
  2. YASMIN [Suspect]
     Indication: PREMENSTRUAL DYSPHORIC DISORDER
  3. YASMIN [Suspect]
     Indication: ACNE
  4. YASMIN [Suspect]
     Indication: PREMENSTRUAL SYNDROME
  5. ALIMENTARY TRACT AND METABOLISM [Concomitant]
     Indication: DIARRHOEA
     Route: 065
  6. BENTYL [Concomitant]
     Indication: DIARRHOEA
     Route: 065
  7. QUESTRAN LIGHT [Concomitant]
     Indication: PRODUCT USED FOR UNKNOWN INDICATION
     Route: 065
     Dates: start: 200712
  8. FLAGYL [Concomitant]
     Indication: COLITIS
     Route: 065
  9. CIPRO [Concomitant]
     Indication: COLITIS
     Route: 065
  10. LEVSIN [Concomitant]
     Indication: PRODUCT USED FOR UNKNOWN INDICATION
     Route: 065
  11. NEXIUM [Concomitant]
     Indication: PRODUCT USED FOR UNKNOWN INDICATION
     Dosage: DAILY DOSE 40 MG
     Route: 065
  12. ASMANEX [Concomitant]
     Indication: PRODUCT USED FOR UNKNOWN INDICATION
     Dosage: DAILY DOSE 2 PUFF(S)
     Route: 065
  13. ALBUTEROL [Concomitant]
     Indication: PRODUCT USED FOR UNKNOWN INDICATION
     Dosage: 2 PUFF(S) (DAILY DOSE), PRN, RESPIRATORY
     Route: 055
  14. NASOCORT [Concomitant]
     Indication: PRODUCT USED FOR UNKNOWN INDICATION
     Dosage: DAILY DOSE 2 PUFF(S)
     Route: 065
  15. AMOXICILLIN [Concomitant]
     Indication: SINUSITIS
     Route: 065
  16. ADVAIR DISKUS [Concomitant]
     Indication: PRODUCT USED FOR UNKNOWN INDICATION
     Route: 065
  17. RESPIRATORY SYSTEM [Concomitant]
     Indication: PRODUCT USED FOR UNKNOWN INDICATION
     Route: 065

REACTIONS (11)
  - Gallbladder disorder [None]
  - Cholecystitis chronic [None]
  - Biliary dyskinesia [None]
  - Hepatic adenoma [Recovered/Resolved]
  - Hepatic steatosis [None]
  - Depression [None]
  - Anxiety [None]
  - Obsessive-compulsive disorder [None]
  - Menstrual disorder [None]
  - Abdominal pain [None]
  - Mental disorder [None]
